FAERS Safety Report 9433282 (Version 3)
Quarter: 2013Q3

REPORT INFORMATION
  Report Type: Spontaneous
  Country: JP (occurrence: JP)
  Receive Date: 20130731
  Receipt Date: 20130826
  Transmission Date: 20140515
  Serious: Yes (Other)
  Sender: FDA-Public Use
  Company Number: JP-ELI_LILLY_AND_COMPANY-JP201307007718

PATIENT
  Age: 79 Year
  Sex: Female
  Weight: 53 kg

DRUGS (2)
  1. EVISTA [Suspect]
     Indication: OSTEOPOROSIS POSTMENOPAUSAL
     Dosage: 60 MG, QD
     Route: 048
     Dates: start: 20080529, end: 201307
  2. CALCITRIOL [Suspect]
     Indication: OSTEOPOROSIS POSTMENOPAUSAL
     Dosage: 0.5 UG, QD
     Route: 048
     Dates: start: 20071211, end: 201307

REACTIONS (2)
  - Cervix carcinoma [Unknown]
  - Hypercalcaemia [Unknown]
